FAERS Safety Report 16028140 (Version 1)
Quarter: 2019Q1

REPORT INFORMATION
  Report Type: Spontaneous
  Country: CN (occurrence: CN)
  Receive Date: 20190304
  Receipt Date: 20190304
  Transmission Date: 20190418
  Serious: Yes (Other)
  Sender: FDA-Public Use
  Company Number: CN-ROCHE-2272433

PATIENT
  Age: 52 Year
  Sex: Female

DRUGS (19)
  1. AVASTIN [Suspect]
     Active Substance: BEVACIZUMAB
     Indication: LUNG ADENOCARCINOMA STAGE IV
     Route: 065
  2. AVASTIN [Suspect]
     Active Substance: BEVACIZUMAB
     Indication: METASTASES TO BONE
  3. CERITINIB [Suspect]
     Active Substance: CERITINIB
     Indication: LUNG ADENOCARCINOMA STAGE IV
     Route: 065
  4. AVASTIN [Suspect]
     Active Substance: BEVACIZUMAB
     Indication: METASTASES TO CENTRAL NERVOUS SYSTEM
  5. CERITINIB [Suspect]
     Active Substance: CERITINIB
     Indication: METASTASES TO LIVER
  6. CRIZOTINIB [Suspect]
     Active Substance: CRIZOTINIB
     Indication: METASTASES TO LYMPH NODES
  7. CRIZOTINIB [Suspect]
     Active Substance: CRIZOTINIB
     Indication: METASTASES TO LUNG
  8. CERITINIB [Suspect]
     Active Substance: CERITINIB
     Indication: METASTASES TO BONE
  9. CRIZOTINIB [Suspect]
     Active Substance: CRIZOTINIB
     Indication: METASTASES TO CENTRAL NERVOUS SYSTEM
  10. AVASTIN [Suspect]
     Active Substance: BEVACIZUMAB
     Indication: METASTASES TO LIVER
  11. CRIZOTINIB [Suspect]
     Active Substance: CRIZOTINIB
     Indication: LUNG ADENOCARCINOMA STAGE IV
     Route: 065
  12. CRIZOTINIB [Suspect]
     Active Substance: CRIZOTINIB
     Indication: METASTASES TO BONE
  13. CERITINIB [Suspect]
     Active Substance: CERITINIB
     Indication: METASTASES TO LYMPH NODES
  14. CERITINIB [Suspect]
     Active Substance: CERITINIB
     Indication: METASTASES TO LUNG
  15. CERITINIB [Suspect]
     Active Substance: CERITINIB
     Indication: METASTASES TO CENTRAL NERVOUS SYSTEM
  16. CRIZOTINIB [Suspect]
     Active Substance: CRIZOTINIB
     Indication: METASTASES TO LIVER
  17. AVASTIN [Suspect]
     Active Substance: BEVACIZUMAB
     Indication: METASTASES TO LYMPH NODES
  18. AVASTIN [Suspect]
     Active Substance: BEVACIZUMAB
     Indication: METASTASES TO LUNG
  19. ZOLEDRONATE [Concomitant]
     Active Substance: ZOLEDRONIC ACID
     Indication: METASTASES TO BONE
     Route: 065

REACTIONS (10)
  - Fatigue [Unknown]
  - Bone marrow failure [Unknown]
  - Muscular weakness [Unknown]
  - Hepatic function abnormal [Unknown]
  - Hypoaesthesia [Unknown]
  - Diarrhoea [Unknown]
  - Gastrointestinal disorder [Unknown]
  - Nausea [Unknown]
  - Headache [Unknown]
  - Blood pressure increased [Recovered/Resolved]

NARRATIVE: CASE EVENT DATE: 2015
